FAERS Safety Report 7400762-5 (Version None)
Quarter: 2011Q2

REPORT INFORMATION
  Report Type: 
  Country: None (occurrence: None)
  Receive Date: 20110407
  Receipt Date: 20110330
  Transmission Date: 20111010
  Serious: Yes (Hospitalization)
  Sender: FDA-Public Use
  Company Number: A0921699A

PATIENT
  Sex: Female

DRUGS (2)
  1. PAXIL CR [Suspect]
     Dosage: 25MG UNKNOWN
     Route: 065
     Dates: start: 20070601
  2. VENTOLIN [Suspect]
     Route: 065
     Dates: start: 20070601

REACTIONS (2)
  - CARDIAC ENZYMES INCREASED [None]
  - DYSPNOEA [None]
